FAERS Safety Report 10910277 (Version 1)
Quarter: 2015Q1

REPORT INFORMATION
  Report Type: Spontaneous
  Country: US (occurrence: US)
  Receive Date: 20150312
  Receipt Date: 20150312
  Transmission Date: 20150721
  Serious: No
  Sender: FDA-Public Use
  Company Number: US-SA-2014SA152306

PATIENT
  Age: 46 Year
  Sex: Male

DRUGS (1)
  1. NASACORT ALLERGY 24HR [Suspect]
     Active Substance: TRIAMCINOLONE ACETONIDE
     Indication: ASTHMA
     Dosage: 2 SPRAYS PER NOSTRIL?PRODUCT START: 5 YEARS AGO
     Route: 045

REACTIONS (1)
  - Drug ineffective for unapproved indication [Unknown]
